FAERS Safety Report 9354428 (Version 1)
Quarter: 2013Q2

REPORT INFORMATION
  Report Type: Spontaneous
  Country: FR (occurrence: FR)
  Receive Date: 20130618
  Receipt Date: 20130618
  Transmission Date: 20140414
  Serious: Yes (Other)
  Sender: FDA-Public Use
  Company Number: FR-TEVA-412918ISR

PATIENT
  Sex: Male

DRUGS (1)
  1. FUROSEMIDE TEVA 40 MG, COMPRIM? S?CABLE [Suspect]
     Route: 048

REACTIONS (2)
  - Pulmonary oedema [Recovered/Resolved]
  - Somnolence [Recovered/Resolved]
